FAERS Safety Report 17884566 (Version 1)
Quarter: 2020Q2

REPORT INFORMATION
  Report Type: Spontaneous
  Country: GB (occurrence: GB)
  Receive Date: 20200611
  Receipt Date: 20200611
  Transmission Date: 20200714
  Serious: Yes (Other)
  Sender: FDA-Public Use
  Company Number: GB-MYLANLABS-2020M1055198

PATIENT
  Age: 70 Year
  Sex: Male

DRUGS (3)
  1. PREGABALIN. [Suspect]
     Active Substance: PREGABALIN
     Indication: NEURALGIA
     Dosage: 300 MILLIGRAM, 0.5 DAY
     Route: 065
  2. IVIGLOB EX [Concomitant]
     Active Substance: HUMAN IMMUNOGLOBULIN G
     Dosage: WEEKLY COURSES OF IMMUNE GLOBULIN EVERY FIVE WEEKS
     Route: 042
  3. IVIGLOB EX [Concomitant]
     Active Substance: HUMAN IMMUNOGLOBULIN G
     Indication: NEURALGIA
     Dosage: STARTED AT UNSPECIFIED DOSAGE
     Route: 042

REACTIONS (1)
  - Drug ineffective [Unknown]
